FAERS Safety Report 6391128-8 (Version None)
Quarter: 2009Q4

REPORT INFORMATION
  Report Type: 
  Country: None (occurrence: None)
  Receive Date: 20091007
  Receipt Date: 20091001
  Transmission Date: 20100525
  Serious: Yes (Hospitalization)
  Sender: FDA-Public Use
  Company Number: FR-WYE-G04547609

PATIENT
  Sex: Female

DRUGS (2)
  1. EFFEXOR [Suspect]
     Indication: BIPOLAR DISORDER
     Dosage: 75 MG STRENGTH; DOSE UNKNOWN
     Route: 048
     Dates: start: 20090811, end: 20090819
  2. TEGRETOL [Suspect]
     Indication: BIPOLAR DISORDER
     Route: 048
     Dates: start: 20090703, end: 20090819

REACTIONS (1)
  - DRUG RASH WITH EOSINOPHILIA AND SYSTEMIC SYMPTOMS [None]
